FAERS Safety Report 8414176-2 (Version None)
Quarter: 2012Q2

REPORT INFORMATION
  Report Type: 
  Country: None (occurrence: None)
  Receive Date: 20120605
  Receipt Date: 20120522
  Transmission Date: 20120825
  Serious: No
  Sender: FDA-Public Use
  Company Number: US-ASTRAZENECA-2012SE33249

PATIENT
  Age: 43 Year
  Sex: Female

DRUGS (9)
  1. TRILIPIX [Concomitant]
  2. OTC STUFF [Concomitant]
  3. GLIMPRIDE [Concomitant]
  4. NEXIUM [Suspect]
     Route: 048
  5. BENICAR HCT [Concomitant]
  6. METOCLOPRAMIDE [Concomitant]
  7. ZOCOR [Concomitant]
  8. INDOMETHACIN [Concomitant]
  9. BYETTA [Concomitant]

REACTIONS (2)
  - GASTROOESOPHAGEAL REFLUX DISEASE [None]
  - DRUG DOSE OMISSION [None]
